FAERS Safety Report 4288177-2 (Version None)
Quarter: 2004Q1

REPORT INFORMATION
  Report Type: 
  Country: None (occurrence: None)
  Receive Date: 20040202
  Receipt Date: 20030416
  Transmission Date: 20041129
  Serious: Yes (Hospitalization)
  Sender: FDA-Public Use
  Company Number: 136672USA

PATIENT
  Age: 45 Year
  Sex: Female

DRUGS (3)
  1. COPAXONE [Suspect]
     Indication: MULTIPLE SCLEROSIS
     Dosage: 20 MILLIGRAM DAILY SUBCUTANEOUS
     Route: 058
     Dates: start: 20030108
  2. NEURONTIN [Concomitant]
  3. MULTI-VITAMIN [Concomitant]

REACTIONS (5)
  - ASTHENIA [None]
  - DYSKINESIA [None]
  - FALL [None]
  - FATIGUE [None]
  - HYPOAESTHESIA [None]
